FAERS Safety Report 12463058 (Version 1)
Quarter: 2016Q2

REPORT INFORMATION
  Report Type: Spontaneous
  Country: US (occurrence: US)
  Receive Date: 20160614
  Receipt Date: 20160614
  Transmission Date: 20160815
  Serious: No
  Sender: FDA-Public Use
  Company Number: US-JNJFOC-20160500813

PATIENT
  Age: 70 Year
  Sex: Female
  Weight: 63.05 kg

DRUGS (1)
  1. STELARA [Suspect]
     Active Substance: USTEKINUMAB
     Indication: PSORIASIS
     Route: 058
     Dates: start: 201603

REACTIONS (2)
  - Drug dose omission [Unknown]
  - Procedural complication [Unknown]

NARRATIVE: CASE EVENT DATE: 201603
